FAERS Safety Report 19457577 (Version 1)
Quarter: 2021Q2

REPORT INFORMATION
  Report Type: Spontaneous
  Country: US (occurrence: US)
  Receive Date: 20210624
  Receipt Date: 20210624
  Transmission Date: 20210717
  Serious: No
  Sender: FDA-Public Use
  Company Number: US-TEVA-2021-US-1926374

PATIENT
  Sex: Female

DRUGS (4)
  1. SALBUTAMOL [Suspect]
     Active Substance: ALBUTEROL
  2. SALBUTAMOL [Suspect]
     Active Substance: ALBUTEROL
  3. SALBUTAMOL [Suspect]
     Active Substance: ALBUTEROL
     Route: 065
  4. SALBUTAMOL [Suspect]
     Active Substance: ALBUTEROL

REACTIONS (2)
  - Expired product administered [Unknown]
  - Drug ineffective [Unknown]
